FAERS Safety Report 9794587 (Version 2)
Quarter: 2014Q1

REPORT INFORMATION
  Report Type: Spontaneous
  Country: US (occurrence: US)
  Receive Date: 20140102
  Receipt Date: 20140221
  Transmission Date: 20141002
  Serious: Yes (Hospitalization, Other)
  Sender: FDA-Public Use
  Company Number: US-UCBSA-107440

PATIENT
  Age: 61 Year
  Sex: Male
  Weight: 63.5 kg

DRUGS (12)
  1. CIMZIA [Suspect]
     Indication: CROHN^S DISEASE
     Dosage: 1 SHOT
     Route: 058
     Dates: start: 201206, end: 20131230
  2. CIMZIA [Suspect]
     Indication: CROHN^S DISEASE
     Dosage: 2 SHOTS EVERY MONTH
     Route: 058
  3. BONIVA [Concomitant]
     Indication: OSTEOPOROSIS
     Dosage: 1 YEAR
     Route: 048
  4. IRON SUPPLEMENT [Concomitant]
     Indication: HAEMOGLOBIN DECREASED
     Dosage: DOSE:1 TABLET, 15 MONTHS AGO
     Route: 048
  5. PREDNISONE [Concomitant]
     Indication: CROHN^S DISEASE
     Route: 048
     Dates: start: 201312, end: 201312
  6. PREDNISONE [Concomitant]
     Indication: CROHN^S DISEASE
     Route: 048
     Dates: start: 201312, end: 20140206
  7. LORAZEPAM [Concomitant]
     Indication: ANXIETY
     Dosage: 3-4 YEARS AGO
     Route: 048
  8. LORAZEPAM [Concomitant]
     Indication: STRESS
     Dosage: 3-4 YEARS AGO
     Route: 048
  9. LORAZEPAM [Concomitant]
     Indication: ANXIETY
     Dosage: USING FOR COUPLE OF YEARS
     Route: 048
  10. LORAZEPAM [Concomitant]
     Indication: STRESS
     Dosage: USING FOR COUPLE OF YEARS
     Route: 048
  11. ALENDRONATE [Concomitant]
     Indication: OSTEOPOROSIS
     Dosage: UNKNOWN DOSE, USING FOR 13 MONTHS
     Route: 048
  12. 6MP [Concomitant]
     Route: 048
     Dates: start: 20131210, end: 20140110

REACTIONS (10)
  - Crohn^s disease [Unknown]
  - Pulmonary mass [Unknown]
  - Dyspnoea [Not Recovered/Not Resolved]
  - Haemoglobin decreased [Recovered/Resolved]
  - Intestinal obstruction [Recovered/Resolved]
  - Dizziness [Not Recovered/Not Resolved]
  - Asthenia [Not Recovered/Not Resolved]
  - Flushing [Recovered/Resolved]
  - Cough [Recovering/Resolving]
  - Pain [Recovered/Resolved]
